FAERS Safety Report 17457008 (Version 3)
Quarter: 2020Q4

REPORT INFORMATION
  Report Type: Spontaneous
  Country: US (occurrence: US)
  Receive Date: 20200225
  Receipt Date: 20201203
  Transmission Date: 20210113
  Serious: No
  Sender: FDA-Public Use
  Company Number: US-SA-2020SA048818

PATIENT

DRUGS (17)
  1. GABAPENTIN. [Concomitant]
     Active Substance: GABAPENTIN
  2. SINGULAIR [Concomitant]
     Active Substance: MONTELUKAST SODIUM
  3. DUPIXENT [Suspect]
     Active Substance: DUPILUMAB
     Dosage: 300 MG, QOW
     Route: 058
     Dates: start: 20200219
  4. PROAIR DIGIHALER [Concomitant]
     Active Substance: ALBUTEROL SULFATE
  5. DULERA [Concomitant]
     Active Substance: FORMOTEROL FUMARATE DIHYDRATE\MOMETASONE FUROATE
  6. KLONOPIN [Concomitant]
     Active Substance: CLONAZEPAM
  7. LOSARTAN POTASSIUM. [Concomitant]
     Active Substance: LOSARTAN POTASSIUM
  8. VITAMIN B12 [VITAMIN B12 NOS] [Concomitant]
     Active Substance: CYANOCOBALAMIN
  9. MONTELUKAST [Concomitant]
     Active Substance: MONTELUKAST SODIUM
  10. SPIRONOLACTON [Concomitant]
     Active Substance: SPIRONOLACTONE
  11. FISH OIL [Concomitant]
     Active Substance: FISH OIL
  12. RALOXIFENE. [Concomitant]
     Active Substance: RALOXIFENE
  13. BIOTIN [Concomitant]
     Active Substance: BIOTIN
  14. PYRIDOSTIGMINE [Concomitant]
     Active Substance: PYRIDOSTIGMINE
  15. DUPIXENT [Suspect]
     Active Substance: DUPILUMAB
     Indication: PRODUCT USED FOR UNKNOWN INDICATION
     Dosage: 300 MG, QOW
     Route: 058
     Dates: start: 2019
  16. PROAIR HFA [Concomitant]
     Active Substance: ALBUTEROL SULFATE
  17. PRAVASTATIN. [Concomitant]
     Active Substance: PRAVASTATIN

REACTIONS (3)
  - Product use issue [Unknown]
  - Product dose omission issue [Unknown]
  - Sinusitis [Unknown]
